FAERS Safety Report 7043498-5 (Version None)
Quarter: 2010Q4

REPORT INFORMATION
  Report Type: 
  Country: None (occurrence: None)
  Receive Date: 20101013
  Receipt Date: 20101001
  Transmission Date: 20110411
  Serious: Yes (Hospitalization)
  Sender: FDA-Public Use
  Company Number: AU-ACTELION-A-CH2010-40233

PATIENT
  Sex: Female
  Weight: 76 kg

DRUGS (15)
  1. TRACLEER [Suspect]
     Indication: PULMONARY HYPERTENSION
     Dosage: UNK
     Route: 048
     Dates: start: 20100917, end: 20100917
  2. TRACLEER [Suspect]
     Dosage: 125 MG, BID
     Route: 048
     Dates: end: 20100910
  3. VENTAVIS BAYER SCHERING [Concomitant]
     Indication: PULMONARY ARTERIAL HYPERTENSION
     Dosage: UNK
     Dates: start: 20100914
  4. METHOTREXATE [Suspect]
  5. PARACETAMOL [Suspect]
     Dosage: UNK
     Dates: end: 20100917
  6. SILDENAFIL CITRATE [Concomitant]
  7. PREDNISONE TAB [Concomitant]
  8. SPIRONOLACTONE [Concomitant]
  9. ASPIRIN [Concomitant]
  10. FOLIC ACID [Concomitant]
  11. FOLINIC ACID [Concomitant]
  12. ESOMEPRAZOLE [Concomitant]
  13. FUROSEMIDE [Concomitant]
  14. METOCLOPRAMIDE [Concomitant]
  15. PANADEINE PLUS [Concomitant]

REACTIONS (9)
  - ALANINE AMINOTRANSFERASE INCREASED [None]
  - ASPARTATE AMINOTRANSFERASE INCREASED [None]
  - BLOOD BILIRUBIN INCREASED [None]
  - DISEASE PROGRESSION [None]
  - DYSPNOEA [None]
  - LIVER FUNCTION TEST ABNORMAL [None]
  - MALAISE [None]
  - NAUSEA [None]
  - PULMONARY ARTERIAL HYPERTENSION [None]
